FAERS Safety Report 25354338 (Version 1)
Quarter: 2025Q2

REPORT INFORMATION
  Report Type: Report from Study
  Country: BR (occurrence: BR)
  Receive Date: 20250523
  Receipt Date: 20250523
  Transmission Date: 20250717
  Serious: Yes (Other)
  Sender: NOVARTIS
  Company Number: BR-002147023-NVSC2025BR076158

PATIENT
  Age: 41 Year
  Sex: Male
  Weight: 135 kg

DRUGS (3)
  1. GLIVEC [Suspect]
     Active Substance: IMATINIB MESYLATE
     Indication: Chronic myeloid leukaemia
     Dosage: 1 DOSAGE FORM, QD (1X A DAY)
     Route: 048
     Dates: start: 201703
  2. TASIGNA [Suspect]
     Active Substance: NILOTINIB
     Indication: Chronic myeloid leukaemia
     Dosage: 2 DOSAGE FORM, QD (2X A DAY)
     Route: 048
     Dates: start: 201804
  3. ESCITALOPRAM [Suspect]
     Active Substance: ESCITALOPRAM OXALATE
     Indication: Product used for unknown indication
     Dosage: 1 DOSAGE FORM, QD (1X A DAY)
     Route: 048

REACTIONS (11)
  - Apnoea [Unknown]
  - COVID-19 [Recovered/Resolved with Sequelae]
  - Obesity [Recovering/Resolving]
  - Hypertension [Unknown]
  - Fluid retention [Unknown]
  - Liver disorder [Unknown]
  - Sinusitis [Unknown]
  - Weight increased [Unknown]
  - Drug effect less than expected [Unknown]
  - Sleep disorder [Unknown]
  - Weight decreased [Unknown]

NARRATIVE: CASE EVENT DATE: 20201201
